FAERS Safety Report 14338347 (Version 1)
Quarter: 2017Q4

REPORT INFORMATION
  Report Type: Report from Study
  Country: CN (occurrence: CN)
  Receive Date: 20171229
  Receipt Date: 20171229
  Transmission Date: 20180321
  Serious: Yes (Death, Other)
  Sender: FDA-Public Use
  Company Number: CN-MYLANLABS-2017M1083420

PATIENT
  Age: 69 Year
  Sex: Female

DRUGS (7)
  1. MITOMYCIN. [Suspect]
     Active Substance: MITOMYCIN
     Indication: FALLOPIAN TUBE CANCER
  2. CISPLATIN. [Suspect]
     Active Substance: CISPLATIN
     Indication: ADENOCARCINOMA
  3. CISPLATIN. [Suspect]
     Active Substance: CISPLATIN
     Indication: METASTASES TO PERITONEUM
     Dosage: 120 MG
     Route: 033
  4. SALINE                             /00075401/ [Concomitant]
     Active Substance: SODIUM CHLORIDE
     Indication: PRODUCT USED FOR UNKNOWN INDICATION
     Dosage: 3L
     Route: 033
  5. MITOMYCIN. [Suspect]
     Active Substance: MITOMYCIN
     Indication: ADENOCARCINOMA
  6. CISPLATIN. [Suspect]
     Active Substance: CISPLATIN
     Indication: FALLOPIAN TUBE CANCER
  7. MITOMYCIN. [Suspect]
     Active Substance: MITOMYCIN
     Indication: METASTASES TO PERITONEUM
     Dosage: 30 MG
     Route: 033

REACTIONS (4)
  - Chronic kidney disease [Fatal]
  - Sepsis [Fatal]
  - Myoglobinaemia [Recovered/Resolved]
  - Acute kidney injury [Not Recovered/Not Resolved]
